FAERS Safety Report 20894009 (Version 1)
Quarter: 2022Q2

REPORT INFORMATION
  Report Type: Report from Study
  Country: US (occurrence: US)
  Receive Date: 20220531
  Receipt Date: 20220531
  Transmission Date: 20220721
  Serious: No
  Sender: FDA-Public Use
  Company Number: US-KYOWAKIRIN-2022BKK006139

PATIENT

DRUGS (1)
  1. CRYSVITA [Suspect]
     Active Substance: BUROSUMAB-TWZA
     Indication: Hypophosphataemia
     Dosage: 60 MG, 1X/2 WEEKS
     Route: 058

REACTIONS (3)
  - Nasopharyngitis [Recovering/Resolving]
  - Pyrexia [Unknown]
  - Productive cough [Unknown]

NARRATIVE: CASE EVENT DATE: 20220401
